FAERS Safety Report 7516388-9 (Version None)
Quarter: 2011Q2

REPORT INFORMATION
  Report Type: 
  Country: None (occurrence: None)
  Receive Date: 20110523
  Receipt Date: 20110512
  Transmission Date: 20111010
  Serious: Yes (Death)
  Sender: FDA-Public Use
  Company Number: JPI-P-014790

PATIENT
  Age: 5 Decade
  Sex: Female

DRUGS (2)
  1. XYREM [Suspect]
     Indication: PRODUCT USED FOR UNKNOWN INDICATION
     Dosage: 4.5 GM (2.25 GM,2 IN 1 D), ORAL; 9 GM (4.5 GM,2 IN 1 D), ORAL
     Route: 048
     Dates: start: 20031020, end: 20030101
  2. XYREM [Suspect]
     Indication: PRODUCT USED FOR UNKNOWN INDICATION
     Dosage: 4.5 GM (2.25 GM,2 IN 1 D), ORAL; 9 GM (4.5 GM,2 IN 1 D), ORAL
     Route: 048
     Dates: start: 20031223, end: 20040609

REACTIONS (1)
  - DEATH [None]
